FAERS Safety Report 15757977 (Version 1)
Quarter: 2018Q4

REPORT INFORMATION
  Report Type: Spontaneous
  Country: NL (occurrence: NL)
  Receive Date: 20181225
  Receipt Date: 20181225
  Transmission Date: 20190205
  Serious: Yes (Other)
  Sender: FDA-Public Use
  Company Number: NL-ACCORD-097537

PATIENT
  Age: 66 Year
  Sex: Male

DRUGS (3)
  1. BENSERAZIDE/LEVODOPA [Suspect]
     Active Substance: BENSERAZIDE\LEVODOPA
     Indication: PARKINSON^S DISEASE
     Dosage: AS DISPERSIBLE TABLETS LATER 100MG BEFORE NIGHT TID WAS FURTHER ADDED
     Route: 065
  2. ROPINIROLE/ROPINIROLE HYDROCHLORIDE [Suspect]
     Active Substance: ROPINIROLE HYDROCHLORIDE
     Indication: PARKINSON^S DISEASE
     Route: 065
  3. AMANTADINE. [Suspect]
     Active Substance: AMANTADINE HYDROCHLORIDE
     Indication: DYSKINESIA
     Dosage: INITIAL DOSE UNKNOWN; AUGMENTED TO 100MG TID
     Route: 065

REACTIONS (3)
  - Dyskinesia [Unknown]
  - Myoclonus [Recovered/Resolved]
  - Speech disorder [Unknown]
